FAERS Safety Report 8256085-8 (Version None)
Quarter: 2012Q2

REPORT INFORMATION
  Report Type: 
  Country: None (occurrence: None)
  Receive Date: 20120403
  Receipt Date: 20120326
  Transmission Date: 20120825
  Serious: Yes (Other)
  Sender: FDA-Public Use
  Company Number: JP-ROCHE-1054606

PATIENT

DRUGS (1)
  1. XELODA [Suspect]
     Indication: COLON CANCER
     Dosage: FROM DAY 1-14. 8 CYCLES
     Route: 048

REACTIONS (6)
  - HEPATIC ENZYME INCREASED [None]
  - HAEMATOTOXICITY [None]
  - PALMAR-PLANTAR ERYTHRODYSAESTHESIA SYNDROME [None]
  - NEUTROPENIA [None]
  - BLOOD BILIRUBIN INCREASED [None]
  - DIARRHOEA [None]
